FAERS Safety Report 8906894 (Version 3)
Quarter: 2013Q1

REPORT INFORMATION
  Report Type: Spontaneous
  Country: GB (occurrence: GB)
  Receive Date: 20121113
  Receipt Date: 20130123
  Transmission Date: 20140127
  Serious: Yes (Other)
  Sender: FDA-Public Use
  Company Number: GB-VERTEX PHARMACEUTICAL INC.-2012-024443

PATIENT
  Age: 50 None
  Sex: Male
  Weight: 100 kg

DRUGS (4)
  1. INCIVO [Suspect]
     Indication: HEPATITIS C
     Dosage: DOSAGE FORM: TABLET
     Route: 065
     Dates: start: 20121002
  2. COPEGUS [Concomitant]
     Indication: HEPATITIS C
     Dosage: DOSAGE FORM: UNSPECIFIED
     Route: 065
     Dates: start: 20121002
  3. PEGASYS [Concomitant]
     Indication: HEPATITIS C
     Dosage: DOSAGE FORM: UNSPECIFIED
     Route: 065
     Dates: start: 20121002
  4. FILGRASTIM [Concomitant]
     Indication: NEUTROPENIA
     Dates: start: 20121002

REACTIONS (6)
  - Retinal exudates [Not Recovered/Not Resolved]
  - Vision blurred [Unknown]
  - Vein disorder [Unknown]
  - Constipation [Unknown]
  - Rectal haemorrhage [Unknown]
  - Local swelling [Not Recovered/Not Resolved]
